FAERS Safety Report 12795146 (Version 2)
Quarter: 2016Q4

REPORT INFORMATION
  Report Type: Spontaneous
  Country: US (occurrence: US)
  Receive Date: 20160929
  Receipt Date: 20161013
  Transmission Date: 20170207
  Serious: Yes (Other)
  Sender: FDA-Public Use
  Company Number: US-BAYER-2016-184649

PATIENT
  Age: 73 Year
  Sex: Female

DRUGS (1)
  1. ADEMPAS [Suspect]
     Active Substance: RIOCIGUAT
     Dosage: UNK

REACTIONS (11)
  - Decreased appetite [None]
  - Headache [None]
  - Lethargy [None]
  - Hypotension [None]
  - Cough [None]
  - Wheezing [None]
  - Muscular weakness [None]
  - Chronic obstructive pulmonary disease [None]
  - Nausea [None]
  - Dyspnoea [None]
  - Dizziness [None]

NARRATIVE: CASE EVENT DATE: 201604
